FAERS Safety Report 5990533-9 (Version None)
Quarter: 2008Q4

REPORT INFORMATION
  Report Type: 
  Country: None (occurrence: None)
  Receive Date: 20081202
  Receipt Date: 20080130
  Transmission Date: 20090506
  Serious: Yes (Other)
  Sender: FDA-Public Use
  Company Number: WAES 0709USA00198

PATIENT
  Sex: Female

DRUGS (1)
  1. FOSAMAX [Suspect]
     Indication: OSTEOPOROSIS
     Dosage: 70 MG/PO
     Route: 048
     Dates: start: 19960101, end: 20060101

REACTIONS (5)
  - BLOOD CHOLESTEROL INCREASED [None]
  - HYPERTENSION [None]
  - OSTEONECROSIS [None]
  - SKIN CANCER [None]
  - THYROID DISORDER [None]
